FAERS Safety Report 17685433 (Version 2)
Quarter: 2020Q3

REPORT INFORMATION
  Report Type: Spontaneous
  Country: US (occurrence: US)
  Receive Date: 20200420
  Receipt Date: 20200720
  Transmission Date: 20201102
  Serious: Yes (Other)
  Sender: FDA-Public Use
  Company Number: US-SA-2020SA098781

PATIENT

DRUGS (5)
  1. DOCETAXEL. [Suspect]
     Active Substance: DOCETAXEL
     Dosage: 140 MG, Q3W
     Route: 042
     Dates: start: 20140211, end: 20140211
  2. NEOSAR [Concomitant]
     Active Substance: CYCLOPHOSPHAMIDE
     Indication: BREAST CANCER FEMALE
  3. DOCETAXEL. [Suspect]
     Active Substance: DOCETAXEL
     Indication: BREAST CANCER FEMALE
     Dosage: 140 MG, Q3W
     Route: 042
     Dates: start: 20131203, end: 20131203
  4. PLATINOL [Concomitant]
     Active Substance: CISPLATIN
     Indication: BREAST CANCER FEMALE
     Dosage: UNK
  5. CISPLATIN. [Concomitant]
     Active Substance: CISPLATIN
     Indication: BREAST CANCER FEMALE

REACTIONS (2)
  - Alopecia [Not Recovered/Not Resolved]
  - Psychological trauma [Unknown]

NARRATIVE: CASE EVENT DATE: 2014
